FAERS Safety Report 5338474-4 (Version None)
Quarter: 2007Q2

REPORT INFORMATION
  Report Type: 
  Country: None (occurrence: None)
  Receive Date: 20070530
  Receipt Date: 20070530
  Transmission Date: 20071010
  Serious: Yes (Other)
  Sender: FDA-Public Use
  Company Number: None

PATIENT
  Age: 5 Month
  Sex: Male
  Weight: 9.9791 kg

DRUGS (1)
  1. FLUTICASONE PROPIONATE [Suspect]
     Indication: RASH
     Dosage: 1 TIME A DAY TOPICAL
     Route: 061
     Dates: start: 20061013

REACTIONS (2)
  - APPLICATION SITE ERYTHEMA [None]
  - APPLICATION SITE IRRITATION [None]
